FAERS Safety Report 11884780 (Version 2)
Quarter: 2016Q1

REPORT INFORMATION
  Report Type: Spontaneous
  Country: JP (occurrence: JP)
  Receive Date: 20160104
  Receipt Date: 20160104
  Transmission Date: 20160526
  Serious: Yes (Other)
  Sender: FDA-Public Use
  Company Number: JP-ALEMBIC PHARMACUETICALS LIMITED-2015SCAL000903

PATIENT
  Age: 39 Year
  Sex: Male

DRUGS (6)
  1. ALISKIREN [Suspect]
     Active Substance: ALISKIREN
     Dosage: DOSE REDUCED
  2. VALSARTAN. [Suspect]
     Active Substance: VALSARTAN
     Indication: HYPERTENSION
     Dosage: 320 MG, QD
  3. HYDROCHLOROTHIAZIDE. [Suspect]
     Active Substance: HYDROCHLOROTHIAZIDE
     Indication: HYPERTENSION
     Dosage: 25 MG, QD
  4. ALISKIREN [Suspect]
     Active Substance: ALISKIREN
     Indication: HYPERTENSION
     Dosage: 300 MG, QD
  5. ALLOPURINOL. [Concomitant]
     Active Substance: ALLOPURINOL
     Indication: HYPERTENSION
     Dosage: 100 MG, QD
  6. VALSARTAN. [Suspect]
     Active Substance: VALSARTAN
     Dosage: DOSE REDUCED, 160 MG, QD

REACTIONS (1)
  - Bartter^s syndrome [Unknown]
